FAERS Safety Report 6121470-7 (Version None)
Quarter: 2009Q1

REPORT INFORMATION
  Report Type: 
  Country: None (occurrence: None)
  Receive Date: 20090313
  Receipt Date: 20090313
  Transmission Date: 20090719
  Serious: Yes (Hospitalization)
  Sender: FDA-Public Use
  Company Number: None

PATIENT
  Sex: Female
  Weight: 97 kg

DRUGS (2)
  1. CARBOPLATIN [Suspect]
     Dosage: 750 MG
     Dates: start: 20090205, end: 20090205
  2. TAXOL [Suspect]
     Dosage: 350 MG

REACTIONS (4)
  - BODY TEMPERATURE INCREASED [None]
  - PULMONARY EMBOLISM [None]
  - THYROID NEOPLASM [None]
  - WHITE BLOOD CELL COUNT DECREASED [None]
